FAERS Safety Report 6193078-9 (Version None)
Quarter: 2009Q2

REPORT INFORMATION
  Report Type: 
  Country: None (occurrence: None)
  Receive Date: 20090514
  Receipt Date: 20090514
  Transmission Date: 20091009
  Serious: No
  Sender: FDA-Public Use
  Company Number: None

PATIENT
  Sex: Female

DRUGS (1)
  1. COSOPT [Suspect]
     Indication: OPEN ANGLE GLAUCOMA
     Dosage: 0.5% - 2% BID GTT IN EYE
     Dates: start: 20090405, end: 20090406

REACTIONS (1)
  - INSTILLATION SITE ERYTHEMA [None]
